FAERS Safety Report 8777168 (Version 6)
Quarter: 2013Q1

REPORT INFORMATION
  Report Type: Spontaneous
  Country: US (occurrence: US)
  Receive Date: 20120911
  Receipt Date: 20130218
  Transmission Date: 20140127
  Serious: Yes (Other)
  Sender: FDA-Public Use
  Company Number: US-009507513-1209USA000676

PATIENT
  Age: 17 None
  Sex: Female
  Weight: 70.3 kg

DRUGS (1)
  1. IMPLANON [Suspect]
     Indication: CONTRACEPTION
     Dosage: UNK
     Dates: start: 20090609, end: 20121114

REACTIONS (5)
  - Device difficult to use [Unknown]
  - Complication of device insertion [Unknown]
  - Incorrect drug administration duration [Unknown]
  - Medical device complication [Unknown]
  - Pain [Unknown]
